FAERS Safety Report 4929086-2 (Version None)
Quarter: 2006Q1

REPORT INFORMATION
  Report Type: 
  Country: None (occurrence: None)
  Receive Date: 20060130
  Receipt Date: 20051101
  Transmission Date: 20060701
  Serious: No
  Sender: FDA-Public Use
  Company Number: RB-2272-2005

PATIENT
  Age: 35 Year
  Sex: Female
  Weight: 58.9676 kg

DRUGS (5)
  1. SUBOXONE [Suspect]
     Indication: DRUG DEPENDENCE
     Dosage: 8  MG  BID SL
     Route: 060
     Dates: start: 20050315
  2. SUBUTEX [Suspect]
     Indication: DRUG DEPENDENCE
     Dosage: 4 NG TID SL
     Route: 060
     Dates: start: 20050301, end: 20050314
  3. KLONOPIN [Concomitant]
  4. LEVOXYL [Concomitant]
  5. WELLBUTRIN [Concomitant]

REACTIONS (1)
  - CONSTIPATION [None]
